FAERS Safety Report 9985699 (Version 2)
Quarter: 2014Q1

REPORT INFORMATION
  Report Type: Report from Study
  Country: JP (occurrence: JP)
  Receive Date: 20140307
  Receipt Date: 20140307
  Transmission Date: 20141002
  Serious: Yes (Death, Hospitalization)
  Sender: FDA-Public Use
  Company Number: JP-AMGEN-JPNCT2012050221

PATIENT
  Age: 62 Year
  Sex: Male
  Weight: 60 kg

DRUGS (12)
  1. DARBEPOETIN ALFA [Suspect]
     Indication: NEPHROGENIC ANAEMIA
     Dosage: 80 MUG, Q4WK
     Route: 040
     Dates: start: 20111206, end: 20121204
  2. ZYLORIC [Concomitant]
     Dosage: UNK
     Route: 048
  3. OLMETEC [Concomitant]
     Dosage: UNK
     Route: 048
  4. ADALAT CR [Concomitant]
     Dosage: UNK
     Route: 048
  5. ARGAMATE [Concomitant]
     Dosage: UNK
     Route: 048
  6. URSO [Concomitant]
     Dosage: UNK
     Route: 048
  7. MYSLEE [Concomitant]
     Dosage: UNK
     Route: 048
  8. BIOFERMIN [Concomitant]
     Dosage: UNK
     Route: 048
  9. PURSENNID [Concomitant]
     Dosage: UNK
     Route: 048
  10. MAGMITT [Concomitant]
     Dosage: UNK
     Route: 048
  11. ONEALFA [Concomitant]
     Dosage: UNK
     Route: 048
  12. EPIRUBICIN HYDROCHLORIDE [Concomitant]
     Dosage: UNK
     Route: 065
     Dates: start: 20120614

REACTIONS (3)
  - Endocrine ophthalmopathy [Recovering/Resolving]
  - Hepatic encephalopathy [Fatal]
  - Hypoalbuminaemia [Not Recovered/Not Resolved]
